FAERS Safety Report 5012309-1 (Version None)
Quarter: 2006Q2

REPORT INFORMATION
  Report Type: 
  Country: None (occurrence: None)
  Receive Date: 20060414
  Receipt Date: 20051229
  Transmission Date: 20061013
  Serious: No
  Sender: FDA-Public Use
  Company Number: 2005SP004551

PATIENT
  Age: 63 Year
  Sex: Female
  Weight: 59.8748 kg

DRUGS (3)
  1. LUNESTA [Suspect]
     Indication: INITIAL INSOMNIA
     Dosage: 3 MG;HS; ORAL
     Route: 048
     Dates: start: 20051228, end: 20051228
  2. HORMONES AND RELATED AGENTS [Concomitant]
  3. MULTIVITAMIN [Concomitant]

REACTIONS (3)
  - DYSGEUSIA [None]
  - NAUSEA [None]
  - PARADOXICAL DRUG REACTION [None]
